FAERS Safety Report 5337697-8 (Version None)
Quarter: 2007Q2

REPORT INFORMATION
  Report Type: 
  Country: None (occurrence: None)
  Receive Date: 20070315
  Receipt Date: 20060719
  Transmission Date: 20071010
  Serious: Yes (Life-Threatening, Hospitalization, Other)
  Sender: FDA-Public Use
  Company Number: PHEH2005US02133

PATIENT
  Age: 12 Year
  Sex: Male
  Weight: 40.8 kg

DRUGS (4)
  1. TRILEPTAL [Suspect]
     Indication: AFFECTIVE DISORDER
     Dosage: 1/2 TABLET 450 MG/BID, ORAL
     Route: 048
     Dates: start: 20050124, end: 20050214
  2. ADDERALL XR (AMFETAMINE ASPARTATE, AMFETAMINE SULFATE, DEXAMFETAMINE S [Concomitant]
  3. DEPAKOTE [Concomitant]
  4. BUSPAR [Concomitant]

REACTIONS (49)
  - ABNORMAL BEHAVIOUR [None]
  - ANXIETY [None]
  - BIOPSY SKIN ABNORMAL [None]
  - BLISTER [None]
  - C-REACTIVE PROTEIN INCREASED [None]
  - CELLULITIS [None]
  - CHILLS [None]
  - CONJUNCTIVITIS [None]
  - CONSTIPATION [None]
  - CONTUSION [None]
  - COUGH [None]
  - DECREASED APPETITE [None]
  - DYSPHAGIA [None]
  - ERYTHEMA [None]
  - EXCORIATION [None]
  - EYE DISCHARGE [None]
  - EYE PAIN [None]
  - EYE SWELLING [None]
  - EYELID DISORDER [None]
  - EYELID EXFOLIATION [None]
  - EYELID INFECTION [None]
  - EYELID OEDEMA [None]
  - HEADACHE [None]
  - MIDDLE EAR EFFUSION [None]
  - NAIL DISORDER [None]
  - NASAL CONGESTION [None]
  - NAUSEA [None]
  - ORAL INTAKE REDUCED [None]
  - ORAL MUCOSAL BLISTERING [None]
  - PENILE ULCERATION [None]
  - PHARYNGOLARYNGEAL PAIN [None]
  - POSTNASAL DRIP [None]
  - PRURITUS [None]
  - PYREXIA [None]
  - RASH GENERALISED [None]
  - RASH MACULAR [None]
  - RETCHING [None]
  - RHINORRHOEA [None]
  - SKIN EXFOLIATION [None]
  - SKIN HYPERPIGMENTATION [None]
  - SLEEP DISORDER [None]
  - STEVENS-JOHNSON SYNDROME [None]
  - STREPTOCOCCAL INFECTION [None]
  - UPPER RESPIRATORY TRACT INFECTION [None]
  - URINE OUTPUT DECREASED [None]
  - URTICARIA [None]
  - VIRAL INFECTION [None]
  - VIRAL RASH [None]
  - VOMITING [None]
